FAERS Safety Report 8404803-8 (Version None)
Quarter: 2012Q2

REPORT INFORMATION
  Report Type: 
  Country: None (occurrence: None)
  Receive Date: 20120601
  Receipt Date: 20120531
  Transmission Date: 20120825
  Serious: Yes (Hospitalization)
  Sender: FDA-Public Use
  Company Number: DE-MERCK-1205DEU00104

PATIENT
  Age: 73 Year
  Sex: Male

DRUGS (2)
  1. COSOPT [Suspect]
     Indication: GLAUCOMA
     Route: 047
     Dates: start: 20120501
  2. TRUSOPT [Suspect]
     Indication: GLAUCOMA
     Route: 047
     Dates: start: 20110101, end: 20120501

REACTIONS (4)
  - NAUSEA [None]
  - FATIGUE [None]
  - GLAUCOMA [None]
  - ABDOMINAL PAIN [None]
